FAERS Safety Report 5671794-2 (Version None)
Quarter: 2008Q1

REPORT INFORMATION
  Report Type: 
  Country: None (occurrence: None)
  Receive Date: 20080314
  Receipt Date: 20080303
  Transmission Date: 20080703
  Serious: Yes (Hospitalization)
  Sender: FDA-Public Use
  Company Number: 231195J08USA

PATIENT
  Age: 49 Year
  Sex: Female
  Weight: 90.7194 kg

DRUGS (5)
  1. REBIF [Suspect]
     Indication: MULTIPLE SCLEROSIS
     Dosage: 44 MCG, 3 IN 1 WEEKS, SUBCUTANEOUS
     Route: 058
     Dates: start: 20020627
  2. NEURONTIN [Concomitant]
  3. BACLOFEN [Concomitant]
  4. CELEBREX [Concomitant]
  5. TIZANIDINE HCL [Concomitant]

REACTIONS (5)
  - ABASIA [None]
  - CLOSTRIDIAL INFECTION [None]
  - INFLAMMATORY CARCINOMA OF THE BREAST [None]
  - MUSCULAR WEAKNESS [None]
  - URINARY TRACT INFECTION [None]
